FAERS Safety Report 18578444 (Version 1)
Quarter: 2020Q4

REPORT INFORMATION
  Report Type: Spontaneous
  Country: GB (occurrence: GB)
  Receive Date: 20201204
  Receipt Date: 20201204
  Transmission Date: 20210114
  Serious: Yes (Other)
  Sender: FDA-Public Use
  Company Number: GB-TEVA-2020-GB-1854596

PATIENT
  Age: 89 Year
  Sex: Male
  Weight: 57 kg

DRUGS (10)
  1. CITALOPRAM [Concomitant]
     Active Substance: CITALOPRAM HYDROBROMIDE
     Dosage: WITH OMEPRAZOLE AS ALSO TAKING ASPIRIN.
     Dates: start: 20201104
  2. ACETYLSALICYLIC ACID [Concomitant]
     Active Substance: ASPIRIN
     Dates: start: 20190924
  3. OMEPRAZOLE. [Concomitant]
     Active Substance: OMEPRAZOLE
     Dosage: WHILST TAKING CITALOPRAM
     Dates: start: 20201104
  4. DIGOXIN. [Concomitant]
     Active Substance: DIGOXIN
     Dosage: 1 DOSAGE FORMS DAILY; IN THE MORNING.
     Dates: start: 20200911
  5. MIRTAZAPINE. [Suspect]
     Active Substance: MIRTAZAPINE
     Dosage: 15 MILLIGRAM DAILY; AT BEDTIME.
     Dates: start: 20201021
  6. VENTOLIN [Concomitant]
     Active Substance: ALBUTEROL SULFATE
     Route: 055
     Dates: start: 20190924, end: 20200914
  7. NITROFURANTOIN. [Concomitant]
     Active Substance: NITROFURANTOIN
     Dates: start: 20201029
  8. FOLIC ACID. [Concomitant]
     Active Substance: FOLIC ACID
     Dates: start: 20190924
  9. GANFORT [Concomitant]
     Active Substance: BIMATOPROST\TIMOLOL
     Dosage: BOTH EYES.
     Route: 050
     Dates: start: 20190924
  10. BRINZOLAMIDE [Concomitant]
     Active Substance: BRINZOLAMIDE
     Dosage: USE TWICE DAILY IN BOTH EYES
     Route: 050
     Dates: start: 20190924

REACTIONS (1)
  - Fall [Recovered/Resolved]
